FAERS Safety Report 7280776-9 (Version None)
Quarter: 2011Q1

REPORT INFORMATION
  Report Type: 
  Country: None (occurrence: None)
  Receive Date: 20110208
  Receipt Date: 20110203
  Transmission Date: 20110831
  Serious: No
  Sender: FDA-Public Use
  Company Number: CA-JNJFOC-20101204354

PATIENT
  Age: 65 Year
  Sex: Female

DRUGS (1)
  1. DURAGESIC-50 [Suspect]
     Indication: ILL-DEFINED DISORDER
     Dosage: QUARTER OF THE PATCH
     Route: 062
     Dates: start: 20101209

REACTIONS (2)
  - WRONG TECHNIQUE IN DRUG USAGE PROCESS [None]
  - DRUG PRESCRIBING ERROR [None]
